FAERS Safety Report 6621000-7 (Version None)
Quarter: 2010Q1

REPORT INFORMATION
  Report Type: 
  Country: None (occurrence: None)
  Receive Date: 20100309
  Receipt Date: 20100303
  Transmission Date: 20100710
  Serious: Yes (Death)
  Sender: FDA-Public Use
  Company Number: PHHY2010JP12913

PATIENT
  Sex: Male

DRUGS (4)
  1. ZOLEDRONATE T29581+ [Suspect]
     Indication: METASTASES TO BONE
     Dosage: 4 MG EVERY FOUR WEEKS
     Route: 042
     Dates: start: 20070510, end: 20090214
  2. ZOLEDRONATE T29581+ [Suspect]
     Dosage: 4 MG EVERY FOUR WEEKS
     Route: 042
     Dates: start: 20090320, end: 20091016
  3. ZOLADEX [Concomitant]
     Dosage: 10.8 MG, UNK
     Dates: start: 20071129, end: 20091016
  4. CASODEX [Concomitant]
     Dosage: 80 MG, UNK
     Route: 048
     Dates: start: 20050611, end: 20091016

REACTIONS (7)
  - BLOOD ALKALINE PHOSPHATASE INCREASED [None]
  - BLOOD LACTATE DEHYDROGENASE INCREASED [None]
  - BLOOD UREA INCREASED [None]
  - GASTRIC CANCER [None]
  - MELAENA [None]
  - METASTASES TO LIVER [None]
  - PROSTATE CANCER [None]
